FAERS Safety Report 5865831-X (Version None)
Quarter: 2008Q3

REPORT INFORMATION
  Report Type: 
  Country: None (occurrence: None)
  Receive Date: 20080829
  Receipt Date: 20080822
  Transmission Date: 20090109
  Serious: Yes (Other)
  Sender: FDA-Public Use
  Company Number: DE-ABBOTT-08P-062-0472172-00

PATIENT
  Sex: Female

DRUGS (8)
  1. VALPROIC ACID [Suspect]
     Indication: BIPOLAR DISORDER
     Route: 048
     Dates: start: 20080218
  2. VALPROIC ACID [Suspect]
     Indication: MANIA
     Dosage: 600-0-900 MG
     Route: 048
     Dates: start: 20080401, end: 20080515
  3. VALPROIC ACID [Suspect]
     Dosage: 600-0-600 MG
     Route: 048
     Dates: start: 20080501, end: 20080701
  4. VALPROIC ACID [Suspect]
     Dosage: 600-0-300 MG
     Route: 048
     Dates: start: 20080701
  5. OLANZAPINE [Suspect]
     Indication: BIPOLAR DISORDER
     Dates: start: 20080401, end: 20080515
  6. OLANZAPINE [Suspect]
     Indication: MANIA
     Dates: start: 20080101, end: 20080101
  7. OLANZAPINE [Suspect]
     Dates: start: 20080101
  8. LITHIUM CARBONATE [Concomitant]
     Indication: BIPOLAR DISORDER
     Dates: end: 20080201

REACTIONS (5)
  - BLOOD AMYLASE INCREASED [None]
  - DRUG INTERACTION [None]
  - ERUCTATION [None]
  - NAUSEA [None]
  - TRANSAMINASES INCREASED [None]
